FAERS Safety Report 25677442 (Version 3)
Quarter: 2025Q3

REPORT INFORMATION
  Report Type: Report from Study
  Country: US (occurrence: US)
  Receive Date: 20250813
  Receipt Date: 20250916
  Transmission Date: 20251020
  Serious: Yes (Other)
  Sender: ABBVIE
  Company Number: US-ABBVIE-6235400

PATIENT
  Age: 74 Year
  Sex: Male
  Weight: 62 kg

DRUGS (2)
  1. SKYRIZI [Suspect]
     Active Substance: RISANKIZUMAB-RZAA
     Indication: Psoriasis
     Route: 058
     Dates: start: 20240905
  2. SULFUR [Suspect]
     Active Substance: SULFUR
     Indication: Product used for unknown indication
     Route: 065

REACTIONS (13)
  - Cataract [Recovering/Resolving]
  - Eye swelling [Recovering/Resolving]
  - Scar [Unknown]
  - Wrong technique in product usage process [Recovered/Resolved]
  - Subcutaneous abscess [Recovered/Resolved]
  - Skin infection [Unknown]
  - Tremor [Recovered/Resolved]
  - Vomiting [Recovered/Resolved]
  - Drug hypersensitivity [Recovered/Resolved]
  - Arthralgia [Recovering/Resolving]
  - Hand fracture [Recovering/Resolving]
  - Fall [Unknown]
  - Gastrointestinal disorder [Unknown]

NARRATIVE: CASE EVENT DATE: 20241101
